FAERS Safety Report 4389184-1 (Version None)
Quarter: 2004Q3

REPORT INFORMATION
  Report Type: 
  Country: None (occurrence: None)
  Receive Date: 20040701
  Receipt Date: 20040701
  Transmission Date: 20050211
  Serious: No
  Sender: FDA-Public Use
  Company Number: None

PATIENT
  Sex: Male

DRUGS (2)
  1. HYDROMORPHONE HCL [Suspect]
     Indication: PAIN
     Dosage: 1 MG ONCE INTRAMUSCULAR
     Route: 030
     Dates: start: 20040627, end: 20040627
  2. PROMETHAZINE [Suspect]
     Indication: PROPHYLAXIS OF NAUSEA AND VOMITING
     Dosage: 25 MG ONCE INTRAMUSCULAR
     Route: 030
     Dates: start: 20040627, end: 20040627

REACTIONS (7)
  - COLD SWEAT [None]
  - DIZZINESS POSTURAL [None]
  - HYPERHIDROSIS [None]
  - HYPOTENSION [None]
  - LOSS OF CONSCIOUSNESS [None]
  - NAUSEA [None]
  - PHARMACEUTICAL PRODUCT COMPLAINT [None]
